FAERS Safety Report 4560062-8 (Version None)
Quarter: 2005Q1

REPORT INFORMATION
  Report Type: 
  Country: None (occurrence: None)
  Receive Date: 20050120
  Receipt Date: 20050120
  Transmission Date: 20050727
  Serious: Yes (Hospitalization)
  Sender: FDA-Public Use
  Company Number: None

PATIENT
  Age: 52 Year
  Sex: Male
  Weight: 63.05 kg

DRUGS (12)
  1. AVASTIN [Suspect]
     Indication: HEPATIC NEOPLASM MALIGNANT
     Dosage: 10MG/KG  Q 2 WKS  IV
     Route: 042
     Dates: start: 20040901
  2. LOVENOX [Concomitant]
  3. OXYCODONE HCL [Concomitant]
  4. OXYCONTIN [Concomitant]
  5. TOPROL-XL [Concomitant]
  6. ZESTRIL [Concomitant]
  7. PLAVIX [Concomitant]
  8. LIPITOR [Concomitant]
  9. HYOSCYAMINE [Concomitant]
  10. COMPAZINE [Concomitant]
  11. LEXAPRO [Concomitant]
  12. ATIVAN [Concomitant]

REACTIONS (7)
  - ACUTE ABDOMEN [None]
  - CARCINOID TUMOUR OF THE GASTROINTESTINAL TRACT [None]
  - CONFUSIONAL STATE [None]
  - FAECAL INCONTINENCE [None]
  - HOT FLUSH [None]
  - INTESTINAL PERFORATION [None]
  - MALIGNANT NEOPLASM PROGRESSION [None]
